FAERS Safety Report 7245109-2 (Version None)
Quarter: 2011Q1

REPORT INFORMATION
  Report Type: 
  Country: None (occurrence: None)
  Receive Date: 20110126
  Receipt Date: 20110121
  Transmission Date: 20110831
  Serious: Yes (Hospitalization)
  Sender: FDA-Public Use
  Company Number: GR-ABBOTT-11P-066-0699744-00

PATIENT
  Age: 56 Year
  Sex: Male
  Weight: 113 kg

DRUGS (6)
  1. HUMIRA [Suspect]
     Indication: PSORIASIS
     Route: 058
     Dates: start: 20101213
  2. AMICACIN [Concomitant]
     Indication: LOWER RESPIRATORY TRACT INFECTION
     Route: 042
     Dates: start: 20110120
  3. PIPERACILLIN AND TAZOBACTAM [Concomitant]
     Indication: LOWER RESPIRATORY TRACT INFECTION
     Route: 042
     Dates: start: 20110120
  4. IRBESARTAN [Concomitant]
     Indication: HYPERTENSION
     Route: 048
  5. TIOTROPIUM BROMIDE [Concomitant]
     Indication: CHRONIC OBSTRUCTIVE PULMONARY DISEASE
     Route: 055
  6. DILTIAZEM [Concomitant]
     Indication: HYPERTENSION
     Route: 048

REACTIONS (3)
  - LOWER RESPIRATORY TRACT INFECTION [None]
  - ASTHENIA [None]
  - CHILLS [None]
